FAERS Safety Report 6175008-9 (Version None)
Quarter: 2009Q2

REPORT INFORMATION
  Report Type: 
  Country: None (occurrence: None)
  Receive Date: 20090430
  Receipt Date: 20090422
  Transmission Date: 20091009
  Serious: Yes (Other)
  Sender: FDA-Public Use
  Company Number: PHEH2009US02238

PATIENT
  Sex: Female

DRUGS (9)
  1. TASIGNA [Suspect]
     Indication: CHRONIC MYELOID LEUKAEMIA
     Dosage: 400 MG, BID
     Route: 048
     Dates: start: 20081013, end: 20081028
  2. GLEEVEC [Suspect]
  3. NORVASC [Concomitant]
     Indication: HYPERTENSION
     Dosage: 5 MG 1/2 QD
  4. PLAVIX [Concomitant]
  5. PLAQUENIL [Concomitant]
  6. METAXALONE [Concomitant]
  7. LIPITOR [Concomitant]
  8. TOPROL-XL [Concomitant]
     Dosage: 50 MG, QD
  9. COZAAR [Concomitant]
     Dosage: 25 MG, QD

REACTIONS (4)
  - BLOOD CREATININE INCREASED [None]
  - HYPERGLYCAEMIA [None]
  - RASH GENERALISED [None]
  - RENAL IMPAIRMENT [None]
